FAERS Safety Report 4587189-9 (Version None)
Quarter: 2005Q1

REPORT INFORMATION
  Report Type: 
  Country: None (occurrence: None)
  Receive Date: 20050215
  Receipt Date: 20050202
  Transmission Date: 20050727
  Serious: Yes (Hospitalization)
  Sender: FDA-Public Use
  Company Number: HQWYE082103FEB05

PATIENT
  Age: 50 Year
  Sex: Male
  Weight: 99.1 kg

DRUGS (15)
  1. RAPAMUNE [Suspect]
     Indication: PROPHYLAXIS AGAINST TRANSPLANT REJECTION
     Dosage: SEE ORAL
     Route: 048
     Dates: start: 20040227, end: 20040228
  2. RAPAMUNE [Suspect]
     Indication: PROPHYLAXIS AGAINST TRANSPLANT REJECTION
     Dosage: SEE ORAL
     Route: 048
     Dates: start: 20040229, end: 20040508
  3. RAPAMUNE [Suspect]
     Indication: PROPHYLAXIS AGAINST TRANSPLANT REJECTION
     Dosage: SEE ORAL
     Route: 048
     Dates: start: 20040508, end: 20041017
  4. RAPAMUNE [Suspect]
     Indication: PROPHYLAXIS AGAINST TRANSPLANT REJECTION
     Dosage: SEE ORAL
     Route: 048
     Dates: start: 20041018
  5. NEORAL [Concomitant]
  6. AMLODIPINE [Concomitant]
  7. COLACE (DOCUSATE SODIUM) [Concomitant]
  8. PREVACID [Concomitant]
  9. METAMUCIL-2 [Concomitant]
  10. ASPIRIN [Concomitant]
  11. NEURONTIN [Concomitant]
  12. PERCOCET [Concomitant]
  13. BACTRIM [Concomitant]
  14. NYSTATIN [Concomitant]
  15. COMBIVENT [Concomitant]

REACTIONS (8)
  - ARTHRALGIA [None]
  - CELLULITIS [None]
  - FATIGUE [None]
  - GOUT [None]
  - HYPOPARATHYROIDISM [None]
  - INCISION SITE COMPLICATION [None]
  - INCISIONAL DRAINAGE [None]
  - PERINEPHRIC COLLECTION [None]
